FAERS Safety Report 19746895 (Version 2)
Quarter: 2021Q3

REPORT INFORMATION
  Report Type: Spontaneous
  Country: US (occurrence: US)
  Receive Date: 20210825
  Receipt Date: 20210920
  Transmission Date: 20211014
  Serious: No
  Sender: FDA-Public Use
  Company Number: US-GALDERMA-US2021014902

PATIENT

DRUGS (6)
  1. PROACTIV MD DAILY OIL CONTROL SPF 30 [Suspect]
     Active Substance: AVOBENZONE\OCTISALATE\OCTOCRYLENE
     Indication: ACNE
     Dosage: 1 DOSAGE FORM, UNKNOWN, CUTANEOUS SOLUTION
     Route: 061
     Dates: start: 2021, end: 2021
  2. PROACTIV MD ULTRA GENTLE CLEANSER [Concomitant]
     Indication: ACNE
     Dosage: 1 DOSAGE FORM, UNKNOWN
     Route: 061
     Dates: start: 2021, end: 2021
  3. PROACTIV MD DEEP CLEANSING FACE WASH [Concomitant]
     Active Substance: COSMETICS
     Indication: ACNE
     Dosage: 1 DOSAGE FORM
     Route: 061
     Dates: start: 2021, end: 2021
  4. PROACTIV DEEP CLEANSING WASH [Concomitant]
     Active Substance: SALICYLIC ACID
     Indication: ACNE
     Dosage: 1 DOSAGE FORM, UNKNOWN
     Route: 061
     Dates: start: 2021, end: 2021
  5. PROACTIV MD ADAPALENE ACNE TREATMENT [Suspect]
     Active Substance: ADAPALENE
     Indication: ACNE
     Dosage: 1 DOSAGE FORM, UNKNOWN
     Route: 061
     Dates: start: 2021, end: 2021
  6. PROACTIV REDNESS RELIEF SERUM [Concomitant]
     Indication: ACNE
     Dosage: 1 DOSAGE FORM, UNKNOWN
     Route: 061
     Dates: start: 2021, end: 2021

REACTIONS (7)
  - Blister [Unknown]
  - Skin irritation [Unknown]
  - Dry skin [Unknown]
  - Rash erythematous [Unknown]
  - Erythema [Unknown]
  - Acne [Unknown]
  - Pain of skin [Unknown]

NARRATIVE: CASE EVENT DATE: 2021
